FAERS Safety Report 14970087 (Version 1)
Quarter: 2018Q2

REPORT INFORMATION
  Report Type: Spontaneous
  Country: US (occurrence: US)
  Receive Date: 20180530
  Receipt Date: 20180530
  Transmission Date: 20180711
  Serious: No
  Sender: FDA-Public Use
  Company Number: US-KADMON PHARMACEUTICALS, LLC-KAD201708-000947

PATIENT
  Age: 64 Year
  Sex: Male

DRUGS (3)
  1. RIBASPHERE [Suspect]
     Active Substance: RIBAVIRIN
  2. PEG-INTERFERON ALFA-2A [Suspect]
     Active Substance: PEGINTERFERON ALFA-2A
     Dosage: INJECTION
  3. RIBASPHERE [Suspect]
     Active Substance: RIBAVIRIN

REACTIONS (3)
  - Dry mouth [Unknown]
  - Blood test abnormal [Unknown]
  - Dizziness [Unknown]
